FAERS Safety Report 8885921 (Version 1)
Quarter: 2012Q4

REPORT INFORMATION
  Report Type: 
  Country: FR (occurrence: FR)
  Receive Date: 20121105
  Receipt Date: 20121105
  Transmission Date: 20130627
  Serious: Yes (Hospitalization)
  Sender: FDA-Public Use
  Company Number: PHHO2010FR16059

PATIENT
  Age: 59 Year
  Sex: Female

DRUGS (3)
  1. ALISKIREN [Suspect]
     Indication: CARDIAC FAILURE ACUTE
     Route: 048
     Dates: start: 20100918
  2. TAHOR [Concomitant]
     Dosage: UNK
     Dates: start: 201003
  3. INSPRA [Concomitant]

REACTIONS (6)
  - Gastric disorder [Recovered/Resolved]
  - Nausea [Recovered/Resolved]
  - Vomiting [Recovered/Resolved]
  - Decreased appetite [Recovered/Resolved]
  - Cardiac failure acute [Recovered/Resolved]
  - Disease progression [Recovered/Resolved]
